FAERS Safety Report 22024310 (Version 1)
Quarter: 2023Q1

REPORT INFORMATION
  Report Type: Spontaneous
  Country: US (occurrence: None)
  Receive Date: 20230223
  Receipt Date: 20230223
  Transmission Date: 20230417
  Serious: No
  Sender: FDA-Public Use
  Company Number: US-ROCHE-3058738

PATIENT
  Age: 17 Year
  Sex: Female
  Weight: 52.664 kg

DRUGS (4)
  1. XOLAIR [Suspect]
     Active Substance: OMALIZUMAB
     Indication: Asthma
     Dosage: ONGOING-YES
     Route: 065
     Dates: start: 2016
  2. ADVAIR HFA [Concomitant]
     Active Substance: FLUTICASONE PROPIONATE\SALMETEROL XINAFOATE
     Indication: Asthma
     Dosage: ONGOING-YES, 230/21 MCG 2 INHALATIONS EVERY 10-12 HOURS OR TWICE DAILY
     Route: 055
     Dates: start: 2013
  3. QVAR [Concomitant]
     Active Substance: BECLOMETHASONE DIPROPIONATE
     Indication: Asthma
     Dosage: 2 PUFFS TWICE DAILY AS NEEDED FOR ASTHMA
     Route: 055
     Dates: start: 20211111
  4. ALBUTEROL [Concomitant]
     Active Substance: ALBUTEROL
     Indication: Asthma
     Dosage: 2.5 MG/3 ML EVERY 4-6 HOURS AS NEEDED
     Route: 055
     Dates: start: 2014

REACTIONS (9)
  - Productive cough [Unknown]
  - Nasal congestion [Unknown]
  - Rhinorrhoea [Unknown]
  - Upper-airway cough syndrome [Unknown]
  - Throat irritation [Unknown]
  - Oropharyngeal pain [Unknown]
  - Chest discomfort [Recovered/Resolved]
  - Dyspnoea [Recovered/Resolved]
  - Sputum discoloured [Unknown]

NARRATIVE: CASE EVENT DATE: 20220210
